FAERS Safety Report 8446689-1 (Version None)
Quarter: 2012Q2

REPORT INFORMATION
  Report Type: 
  Country: None (occurrence: None)
  Receive Date: 20120619
  Receipt Date: 20120608
  Transmission Date: 20120825
  Serious: No
  Sender: FDA-Public Use
  Company Number: US-BIOGENIDEC-2012BI020418

PATIENT
  Sex: Female

DRUGS (2)
  1. NUVIGIL [Concomitant]
     Indication: FATIGUE
     Dates: start: 20100101
  2. TYSABRI [Suspect]
     Indication: MULTIPLE SCLEROSIS
     Route: 042
     Dates: start: 20110816

REACTIONS (9)
  - LOGORRHOEA [None]
  - NERVOUSNESS [None]
  - CRYING [None]
  - GAIT DISTURBANCE [None]
  - STOMATITIS [None]
  - ANXIETY [None]
  - DRY MOUTH [None]
  - DRY EYE [None]
  - FEELING COLD [None]
